FAERS Safety Report 6527420-3 (Version None)
Quarter: 2010Q1

REPORT INFORMATION
  Report Type: 
  Country: None (occurrence: None)
  Receive Date: 20100105
  Receipt Date: 20091231
  Transmission Date: 20100710
  Serious: Yes (Hospitalization, Other)
  Sender: FDA-Public Use
  Company Number: GB-WATSON-2009-11202

PATIENT
  Age: 61 Year
  Sex: Female

DRUGS (1)
  1. SIMVASTATIN [Suspect]
     Indication: DRUG USE FOR UNKNOWN INDICATION
     Dosage: 40 MG, DAILY FOR SEVERAL YEARS

REACTIONS (3)
  - MITOCHONDRIAL TOXICITY [None]
  - RHABDOMYOLYSIS [None]
  - UBIQUINONE DECREASED [None]
